FAERS Safety Report 4395834-6 (Version None)
Quarter: 2004Q3

REPORT INFORMATION
  Report Type: 
  Country: None (occurrence: None)
  Receive Date: 20040712
  Receipt Date: 20040625
  Transmission Date: 20050211
  Serious: Yes (Hospitalization)
  Sender: FDA-Public Use
  Company Number: 2004GB00617

PATIENT
  Age: 80 Year
  Sex: Male
  Weight: 88.5 kg

DRUGS (2)
  1. CRESTOR [Suspect]
     Indication: HYPERCHOLESTEROLAEMIA
     Dosage: 10 MG QD PO
     Route: 048
     Dates: start: 20031101, end: 20040308
  2. METFORMIN [Concomitant]

REACTIONS (10)
  - ACUTE CORONARY SYNDROME [None]
  - ACUTE LEFT VENTRICULAR FAILURE [None]
  - DIZZINESS [None]
  - MYOCARDIAL ISCHAEMIA [None]
  - MYOSITIS [None]
  - NAUSEA [None]
  - PULMONARY OEDEMA [None]
  - RENAL FAILURE [None]
  - VISION BLURRED [None]
  - VOMITING [None]
